FAERS Safety Report 10108950 (Version 3)
Quarter: 2014Q2

REPORT INFORMATION
  Report Type: Report from Study
  Country: FR (occurrence: FR)
  Receive Date: 20140425
  Receipt Date: 20140523
  Transmission Date: 20141212
  Serious: Yes (Death, Other)
  Sender: FDA-Public Use
  Company Number: FR-ROCHE-1389492

PATIENT
  Age: 42 Year
  Sex: Male
  Weight: 100 kg

DRUGS (4)
  1. ZELBORAF [Suspect]
     Indication: MALIGNANT MELANOMA
     Route: 048
     Dates: start: 20130911, end: 20140303
  2. LEVETIRACETAM [Concomitant]
     Indication: EPILEPSY
     Route: 048
     Dates: start: 201309
  3. ALFUZOSINE [Concomitant]
     Route: 048
     Dates: start: 201209
  4. TOLEXINE [Concomitant]
     Indication: ACNE
     Route: 048
     Dates: start: 201209

REACTIONS (4)
  - Disease progression [Fatal]
  - Photosensitivity reaction [Recovered/Resolved]
  - Acne [Not Recovered/Not Resolved]
  - Drug ineffective [Unknown]
